FAERS Safety Report 9432744 (Version 1)
Quarter: 2013Q3

REPORT INFORMATION
  Report Type: Not Available
  Country: FR (occurrence: FR)
  Receive Date: 20130731
  Receipt Date: 20130731
  Transmission Date: 20140515
  Serious: Yes (Hospitalization)
  Sender: FDA-Public Use
  Company Number: FR-NAPPMUNDI-GBR-2013-0015159

PATIENT
  Age: 64 Year
  Sex: Female

DRUGS (5)
  1. OXYNORM 10 MG, GELULE [Suspect]
     Indication: PAIN PROPHYLAXIS
     Dosage: 10 MG, UNK
     Route: 048
     Dates: start: 201304, end: 20130515
  2. INSTANYL [Concomitant]
     Dosage: 50 MCG, UNK
     Route: 045
     Dates: start: 201304, end: 20130515
  3. FLUOXETINE [Concomitant]
     Dosage: 20 MG, DAILY
     Route: 048
     Dates: start: 201302
  4. SULFARLEM [Concomitant]
     Dosage: UNK
     Dates: start: 201302
  5. DOMPERIDONE [Concomitant]
     Dosage: 10 MG, TID
     Route: 048
     Dates: start: 201302

REACTIONS (6)
  - Toxicity to various agents [Recovered/Resolved]
  - Somnolence [Recovered/Resolved]
  - Oxygen saturation decreased [Recovered/Resolved]
  - Hypotension [Recovered/Resolved]
  - Bronchial obstruction [Recovered/Resolved]
  - Miosis [Recovered/Resolved]
